FAERS Safety Report 20983234 (Version 3)
Quarter: 2023Q2

REPORT INFORMATION
  Report Type: Spontaneous
  Country: CA (occurrence: CA)
  Receive Date: 20220620
  Receipt Date: 20230504
  Transmission Date: 20230721
  Serious: Yes (Hospitalization)
  Sender: FDA-Public Use
  Company Number: CA-SCALL-2022-CA-001220

PATIENT
  Age: 47 Year
  Sex: Female

DRUGS (39)
  1. RABEPRAZOLE SODIUM [Suspect]
     Active Substance: RABEPRAZOLE SODIUM
     Indication: Product used for unknown indication
     Dosage: DOSE AND FREQUENCY NOT PROVIDED
     Route: 048
  2. RANITIDINE [Concomitant]
     Active Substance: RANITIDINE
     Route: 065
  3. COLCHICINE [Concomitant]
     Active Substance: COLCHICINE
     Route: 065
  4. PERINDOPRIL [Concomitant]
     Active Substance: PERINDOPRIL
     Route: 065
  5. PATIROMER [Suspect]
     Active Substance: PATIROMER
     Dosage: DOSE AND FREQUENCY NOT PROVIDED
     Route: 065
  6. BIAXIN [Suspect]
     Active Substance: CLARITHROMYCIN
     Dosage: DOSE AND FREQUENCY NOT PROVIDED
     Route: 065
  7. CELEBREX [Suspect]
     Active Substance: CELECOXIB
     Dosage: DOSE AND FREQUENCY NOT PROVIDED
     Route: 065
  8. CEPHALEXIN [Suspect]
     Active Substance: CEPHALEXIN
     Dosage: DOSE AND FREQUENCY NOT PROVIDED
     Route: 065
  9. CIPROFLOXACIN [Suspect]
     Active Substance: CIPROFLOXACIN
     Dosage: DOSE AND FREQUENCY NOT PROVIDED
  10. ARAVA [Suspect]
     Active Substance: LEFLUNOMIDE
     Dosage: DOSE AND FREQUENCY NOT PROVIDED
     Route: 065
  11. CLINDAMYCIN [Suspect]
     Active Substance: CLINDAMYCIN
     Dosage: DOSE AND FREQUENCY NOT PROVIDED
     Route: 065
  12. CODEINE [Suspect]
     Active Substance: CODEINE
     Dosage: DOSE AND FREQUENCY NOT PROVIDED
     Route: 065
  13. ENALAPRIL [Suspect]
     Active Substance: ENALAPRIL
     Dosage: DOSE AND FREQUENCY NOT PROVIDED
     Route: 065
  14. ENBREL [Suspect]
     Active Substance: ETANERCEPT
     Dosage: 50MG ONCE A WEEK
     Route: 058
  15. FOSAMAX [Suspect]
     Active Substance: ALENDRONATE SODIUM
     Dosage: DOSE AND FREQUENCY NOT PROVIDED
     Route: 065
  16. GLICLAZIDE [Suspect]
     Active Substance: GLICLAZIDE
     Dosage: DOSE AND FREQUENCY NOT PROVIDED
     Route: 065
  17. HYDRALAZINE HYDROCHLORIDE [Suspect]
     Active Substance: HYDRALAZINE HYDROCHLORIDE
     Dosage: DOSE AND FREQUENCY NOT PROVIDED
     Route: 065
  18. HYDROCHLOROTHIAZIDE [Suspect]
     Active Substance: HYDROCHLOROTHIAZIDE
     Dosage: DOSE AND FREQUENCY NOT PROVIDED
     Route: 065
  19. LEVAQUIN [Suspect]
     Active Substance: LEVOFLOXACIN
     Dosage: DOSE AND FREQUENCY NOT PROVIDED
     Route: 065
  20. ESOMEPRAZOLE [Concomitant]
     Active Substance: ESOMEPRAZOLE
     Dosage: DOSE AND FREQUENCY NOT PROVIDED
     Route: 065
  21. LOSARTAN [Suspect]
     Active Substance: LOSARTAN
     Dosage: DOSE AND FREQUENCY NOT PROVIDED
     Route: 065
  22. METHOTREXATE [Suspect]
     Active Substance: METHOTREXATE
     Dosage: 10 MG ONCE A WEEK
     Route: 058
  23. METOPROLOL TARTRATE [Suspect]
     Active Substance: METOPROLOL TARTRATE
     Dosage: DOSE AND FREQUENCY NOT PROVIDED
     Route: 065
  24. MOXIFLOXACIN HYDROCHLORIDE [Suspect]
     Active Substance: MOXIFLOXACIN HYDROCHLORIDE
     Dosage: FREQUENCY UNKNOWN (400MG)
     Route: 065
  25. ORENCIA [Suspect]
     Active Substance: ABATACEPT
     Dosage: DOSE AND FREQUENCY NOT PROVIDED
     Route: 065
  26. PANTOPRAZOLE MAGNESIUM [Suspect]
     Active Substance: PANTOPRAZOLE MAGNESIUM
     Dosage: DOSE AND FREQUENCY NOT PROVIDED
     Route: 065
  27. PENICILLIN G 2-AMINO-4-METHYLPYRIMIDINE [Suspect]
     Active Substance: PENICILLIN G 2-AMINO-4-METHYLPYRIMIDINE
     Dosage: DOSE AND FREQUENCY NOT PROVIDED
     Route: 065
  28. HYDROXYCHLOROQUINE SULFATE [Suspect]
     Active Substance: HYDROXYCHLOROQUINE SULFATE
     Dosage: DOSE AND FREQUENCY NOT PROVIDED
     Route: 065
  29. ISONIAZID [Suspect]
     Active Substance: ISONIAZID
     Dosage: DOSE AND FREQUENCY NOT PROVIDED
     Route: 065
  30. XELJANZ [Suspect]
     Active Substance: TOFACITINIB CITRATE
     Dosage: (50 MG,12 HR), (50 MG,1 D)
     Route: 048
  31. GOLD [Concomitant]
     Active Substance: GOLD
     Dosage: DOSE AND FREQUENCY NOT PROVIDED
     Route: 065
  32. RITUXIMAB [Concomitant]
     Active Substance: RITUXIMAB
     Dosage: DOSE AND FREQUENCY NOT PROVIDED
     Route: 065
  33. HUMIRA [Concomitant]
     Active Substance: ADALIMUMAB
     Dosage: DOSE AND FREQUENCY NOT PROVIDED
     Route: 065
  34. PIPERACILLIN SODIUM\TAZOBACTAM SODIUM [Suspect]
     Active Substance: PIPERACILLIN SODIUM\TAZOBACTAM SODIUM
     Route: 065
  35. IRON SUCROSE [Suspect]
     Active Substance: IRON SUCROSE
     Dosage: DOSE AND FREQUENCY NOT PROVIDED
     Route: 065
  36. PREDNISONE [Concomitant]
     Active Substance: PREDNISONE
     Dosage: 8.5 MG,1 D
     Route: 065
  37. ATENOLOL [Suspect]
     Active Substance: ATENOLOL
     Dosage: DOSE AND FREQUENCY NOT PROVIDED
     Route: 065
  38. LEVOTHYROXINE [Suspect]
     Active Substance: LEVOTHYROXINE
     Dosage: DOSE AND FREQUENCY NOT PROVIDED
     Route: 065
  39. LEUCOVORIN [Concomitant]
     Active Substance: LEUCOVORIN
     Dosage: DOSE AND FREQUENCY NOT PROVIDED
     Route: 065

REACTIONS (24)
  - Cardiac failure congestive [Unknown]
  - Drug intolerance [Unknown]
  - Liver disorder [Unknown]
  - Drug hypersensitivity [Unknown]
  - Nausea [Unknown]
  - Malaise [Unknown]
  - Drug ineffective [Unknown]
  - Diarrhoea [Unknown]
  - Abdominal discomfort [Unknown]
  - Abdominal pain upper [Unknown]
  - Arthralgia [Unknown]
  - Cough [Unknown]
  - Rash [Unknown]
  - Headache [Unknown]
  - Off label use [Unknown]
  - Product use issue [Unknown]
  - Hepatic enzyme increased [Unknown]
  - Dyspnoea [Unknown]
  - Gastric disorder [Unknown]
  - Hepatic steatosis [Unknown]
  - Hypertension [Unknown]
  - Loss of employment [Unknown]
  - Therapeutic product effect decreased [Unknown]
  - Contraindicated product administered [Unknown]
